FAERS Safety Report 11972560 (Version 3)
Quarter: 2016Q1

REPORT INFORMATION
  Report Type: Spontaneous
  Country: US (occurrence: US)
  Receive Date: 20160128
  Receipt Date: 20160315
  Transmission Date: 20160526
  Serious: Yes (Other)
  Sender: FDA-Public Use
  Company Number: US-PFIZER INC-2016046215

PATIENT
  Age: 64 Year
  Sex: Female
  Weight: 84 kg

DRUGS (2)
  1. LYRICA [Suspect]
     Active Substance: PREGABALIN
     Indication: FIBROMYALGIA
     Dosage: 75 MG, 2X/DAY
  2. LYRICA [Suspect]
     Active Substance: PREGABALIN
     Indication: PAIN
     Dosage: 50 MG, 2X/DAY
     Dates: start: 20150904

REACTIONS (10)
  - Loss of consciousness [Unknown]
  - Fall [Unknown]
  - Drug ineffective [Unknown]
  - Onychomadesis [Unknown]
  - Apathy [Unknown]
  - Activities of daily living impaired [Unknown]
  - Insomnia [Unknown]
  - Drug effect incomplete [Not Recovered/Not Resolved]
  - Muscle disorder [Unknown]
  - Memory impairment [Unknown]

NARRATIVE: CASE EVENT DATE: 201512
